FAERS Safety Report 9486520 (Version 1)
Quarter: 2013Q3

REPORT INFORMATION
  Report Type: Spontaneous
  Country: US (occurrence: None)
  Receive Date: 20130827
  Receipt Date: 20130827
  Transmission Date: 20140515
  Serious: No
  Sender: FDA-Public Use
  Company Number: None

PATIENT
  Age: 62 Year
  Sex: Male
  Weight: 66.23 kg

DRUGS (2)
  1. VENLAFAXINE 75MG HERITAGE [Suspect]
     Indication: PANIC DISORDER
     Route: 048
     Dates: start: 20130802, end: 20130821
  2. VENLAFAXINE 75MG HERITAGE [Suspect]
     Indication: SLEEP DISORDER
     Route: 048
     Dates: start: 20130802, end: 20130821

REACTIONS (3)
  - Insomnia [None]
  - Fatigue [None]
  - Suicidal ideation [None]
